FAERS Safety Report 7202175-8 (Version None)
Quarter: 2010Q4

REPORT INFORMATION
  Report Type: 
  Country: None (occurrence: None)
  Receive Date: 20101229
  Receipt Date: 20101216
  Transmission Date: 20110411
  Serious: Yes (Other)
  Sender: FDA-Public Use
  Company Number: PHHY2010DE87494

PATIENT
  Age: 55 Year
  Sex: Female

DRUGS (2)
  1. FEMARA [Suspect]
     Indication: BREAST CANCER
     Dosage: 2.5 MG, ONCE DAILY
     Route: 048
     Dates: start: 20090801
  2. AMITRIPTYLINE HCL [Concomitant]

REACTIONS (5)
  - ARTHRALGIA [None]
  - BALANCE DISORDER [None]
  - CARPAL TUNNEL SYNDROME [None]
  - DEPRESSION [None]
  - MEMORY IMPAIRMENT [None]
